FAERS Safety Report 6364126-8 (Version None)
Quarter: 2009Q3

REPORT INFORMATION
  Report Type: 
  Country: None (occurrence: None)
  Receive Date: 20090919
  Receipt Date: 20090803
  Transmission Date: 20100115
  Serious: Yes (Hospitalization)
  Sender: FDA-Public Use
  Company Number: US-ABBOTT-08P-163-0445257-00

PATIENT
  Sex: Female
  Weight: 70.824 kg

DRUGS (13)
  1. HUMIRA [Suspect]
     Indication: RHEUMATOID ARTHRITIS
     Dosage: PFS
     Route: 058
     Dates: start: 20030101, end: 20090503
  2. METHOTREXATE [Concomitant]
     Indication: RHEUMATOID ARTHRITIS
     Route: 050
     Dates: start: 20030101, end: 20090501
  3. GABAPENTIN [Concomitant]
     Indication: NERVE INJURY
     Route: 048
     Dates: start: 20080101
  4. ZYRTEC [Concomitant]
     Indication: SEASONAL ALLERGY
  5. SIMVASTATIN [Concomitant]
     Indication: BLOOD CHOLESTEROL INCREASED
  6. FLUOXETINE [Concomitant]
     Indication: ANTIDEPRESSANT THERAPY
  7. VENLAFAXINE HCL [Concomitant]
     Indication: ANTIDEPRESSANT THERAPY
  8. TRICOR [Concomitant]
     Indication: BLOOD CHOLESTEROL INCREASED
  9. SINGULAIR [Concomitant]
     Indication: ASTHMA
  10. METFORMIN HCL [Concomitant]
     Indication: DIABETES MELLITUS
     Dosage: 1/2 OF 500MG TABLET 2X DAILY
     Route: 048
  11. ALPRAZOLAM [Concomitant]
     Indication: INSOMNIA
  12. VITAMINS [Concomitant]
     Indication: VITAMIN SUPPLEMENTATION
  13. FOLIC ACID [Concomitant]
     Indication: VITAMIN SUPPLEMENTATION
     Dates: end: 20090501

REACTIONS (23)
  - ARTHRALGIA [None]
  - BACK PAIN [None]
  - CHILLS [None]
  - CONDITION AGGRAVATED [None]
  - CONTUSION [None]
  - COUGH [None]
  - DYSPHONIA [None]
  - FACE INJURY [None]
  - FALL [None]
  - FEELING OF BODY TEMPERATURE CHANGE [None]
  - HAEMATOMA [None]
  - INCORRECT DOSE ADMINISTERED [None]
  - INJECTION SITE EXTRAVASATION [None]
  - JOINT INJURY [None]
  - JOINT SPRAIN [None]
  - LIMB INJURY [None]
  - MUSCULOSKELETAL DISCOMFORT [None]
  - NERVE INJURY [None]
  - PNEUMONIA [None]
  - PRODUCTIVE COUGH [None]
  - ROTATOR CUFF SYNDROME [None]
  - SPUTUM DISCOLOURED [None]
  - VOMITING [None]
